FAERS Safety Report 6335908-3 (Version None)
Quarter: 2009Q3

REPORT INFORMATION
  Report Type: 
  Country: None (occurrence: None)
  Receive Date: 20090826
  Receipt Date: 20090210
  Transmission Date: 20100115
  Serious: Yes (Other)
  Sender: FDA-Public Use
  Company Number: 09-020

PATIENT
  Sex: Female

DRUGS (1)
  1. PREDNISONE [Suspect]
     Indication: LIVER DISORDER
     Dates: start: 20070901

REACTIONS (5)
  - DIABETES MELLITUS [None]
  - FLUID RETENTION [None]
  - OSTEOPOROSIS [None]
  - SKIN CANCER [None]
  - WEIGHT INCREASED [None]
